FAERS Safety Report 21522066 (Version 1)
Quarter: 2022Q4

REPORT INFORMATION
  Report Type: Spontaneous
  Country: US (occurrence: None)
  Receive Date: 20221027
  Receipt Date: 20221027
  Transmission Date: 20230113
  Serious: Yes (Hospitalization)
  Sender: FDA-Public Use
  Company Number: None

PATIENT
  Age: 72 Year
  Sex: Male
  Weight: 141 kg

DRUGS (2)
  1. APIXABAN [Suspect]
     Active Substance: APIXABAN
     Indication: Atrial fibrillation
     Dosage: 5 MG BID PO
     Route: 048
     Dates: start: 20220311
  2. ASPIRIN [Suspect]
     Active Substance: ASPIRIN
     Indication: Coronary artery disease
     Dosage: 81 MG EVERY DAY PO
     Route: 048
     Dates: start: 20060418

REACTIONS (4)
  - Upper gastrointestinal haemorrhage [None]
  - Gastric ulcer [None]
  - Shock haemorrhagic [None]
  - Gastric haemorrhage [None]

NARRATIVE: CASE EVENT DATE: 20220826
